FAERS Safety Report 20481042 (Version 1)
Quarter: 2022Q1

REPORT INFORMATION
  Report Type: Spontaneous
  Country: US (occurrence: US)
  Receive Date: 20220216
  Receipt Date: 20220216
  Transmission Date: 20220423
  Serious: No
  Sender: FDA-Public Use
  Company Number: US-ORGANON-O2202USA000306

PATIENT
  Age: 47 Year
  Sex: Male

DRUGS (4)
  1. ZETIA [Suspect]
     Active Substance: EZETIMIBE
     Indication: Low density lipoprotein
     Dosage: 10 MILLIGRAM, DAILY
     Route: 048
  2. ATORVASTATIN [Concomitant]
     Active Substance: ATORVASTATIN
     Dosage: 80 MILLIGRAM, DAILY
  3. ASPIRIN [Concomitant]
     Active Substance: ASPIRIN
     Dosage: 325 MILLIGRAM, QD
  4. CLOPIDOGREL [Concomitant]
     Active Substance: CLOPIDOGREL BISULFATE
     Dosage: 75 MILLIGRAM, QD

REACTIONS (2)
  - Drug intolerance [Unknown]
  - Rash [Unknown]
